FAERS Safety Report 19172693 (Version 1)
Quarter: 2021Q2

REPORT INFORMATION
  Report Type: Spontaneous
  Country: US (occurrence: US)
  Receive Date: 20210422
  Receipt Date: 20210422
  Transmission Date: 20210717
  Serious: Yes (Death)
  Sender: FDA-Public Use
  Company Number: None

PATIENT
  Age: 69 Year
  Sex: Female
  Weight: 59.4 kg

DRUGS (1)
  1. RYDAPT [Suspect]
     Active Substance: MIDOSTAURIN
     Indication: LEUKAEMIA
     Route: 048
     Dates: start: 20210313, end: 20210417

REACTIONS (2)
  - Pneumonia fungal [None]
  - Adverse drug reaction [None]

NARRATIVE: CASE EVENT DATE: 20210417
